FAERS Safety Report 8335374-2 (Version None)
Quarter: 2012Q2

REPORT INFORMATION
  Report Type: 
  Country: None (occurrence: None)
  Receive Date: 20120503
  Receipt Date: 20120427
  Transmission Date: 20120825
  Serious: Yes (Hospitalization)
  Sender: FDA-Public Use
  Company Number: US-MERCK-1106USA01962

PATIENT
  Age: 61 Year
  Sex: Female
  Weight: 63 kg

DRUGS (4)
  1. FOSAMAX [Suspect]
     Indication: OSTEOPOROSIS
     Route: 048
     Dates: start: 20031201, end: 20101001
  2. VITAMINS (UNSPECIFIED) [Concomitant]
     Route: 065
  3. CALCIUM (UNSPECIFIED) [Concomitant]
     Route: 065
  4. ALENDRONATE SODIUM [Suspect]
     Route: 048
     Dates: start: 20100301

REACTIONS (24)
  - FEMUR FRACTURE [None]
  - CHRONIC OBSTRUCTIVE PULMONARY DISEASE [None]
  - LIGAMENT SPRAIN [None]
  - EMPHYSEMA [None]
  - ROAD TRAFFIC ACCIDENT [None]
  - BLOOD PRESSURE INCREASED [None]
  - CONSTIPATION [None]
  - MUSCLE STRAIN [None]
  - THROMBOCYTOPENIA [None]
  - LIVER DISORDER [None]
  - HYPERTHYROIDISM [None]
  - ANAEMIA POSTOPERATIVE [None]
  - OSTEOPENIA [None]
  - HYPOTHYROIDISM [None]
  - COSTOCHONDRITIS [None]
  - FALL [None]
  - BURSITIS [None]
  - RIB FRACTURE [None]
  - HYPERTENSION [None]
  - ARTHROPATHY [None]
  - RENAL CYST [None]
  - LUNG NEOPLASM [None]
  - DYSLIPIDAEMIA [None]
  - BACK PAIN [None]
